FAERS Safety Report 6917158-2 (Version None)
Quarter: 2010Q3

REPORT INFORMATION
  Report Type: 
  Country: None (occurrence: None)
  Receive Date: 20100810
  Receipt Date: 20080414
  Transmission Date: 20110219
  Serious: Yes (Other)
  Sender: FDA-Public Use
  Company Number: US-PFIZER INC-2006107505

PATIENT
  Sex: Male
  Weight: 102.1 kg

DRUGS (2)
  1. CELEBREX [Suspect]
     Indication: POLYARTHRITIS
     Dates: start: 20050222
  2. BEXTRA [Suspect]
     Indication: POLYARTHRITIS

REACTIONS (3)
  - ANXIETY [None]
  - BLOOD PRESSURE ABNORMAL [None]
  - HEART RATE DECREASED [None]
